FAERS Safety Report 5477777-X (Version None)
Quarter: 2007Q4

REPORT INFORMATION
  Report Type: 
  Country: None (occurrence: None)
  Receive Date: 20071002
  Receipt Date: 20071002
  Transmission Date: 20080405
  Serious: No
  Sender: FDA-Public Use
  Company Number: None

PATIENT
  Age: 32 Month
  Sex: Female
  Weight: 51.2565 kg

DRUGS (2)
  1. LEVAQUIN [Suspect]
     Indication: HYPOGLYCAEMIA
     Dosage: 500 ONCE DAILY PO
     Route: 048
     Dates: start: 20070924, end: 20070928
  2. LEVAQUIN [Suspect]
     Indication: URINARY TRACT INFECTION
     Dosage: 500 ONCE DAILY PO
     Route: 048
     Dates: start: 20070924, end: 20070928

REACTIONS (5)
  - ARTHRALGIA [None]
  - ASTHENIA [None]
  - FATIGUE [None]
  - MYALGIA [None]
  - PHARYNGOLARYNGEAL PAIN [None]
